FAERS Safety Report 19880770 (Version 1)
Quarter: 2021Q3

REPORT INFORMATION
  Report Type: Spontaneous
  Country: CY (occurrence: CY)
  Receive Date: 20210925
  Receipt Date: 20210925
  Transmission Date: 20211014
  Serious: Yes (Other)
  Sender: FDA-Public Use
  Company Number: NVSC2021CY216114

PATIENT
  Age: 56 Year
  Sex: Female

DRUGS (2)
  1. MAYZENT [Suspect]
     Active Substance: SIPONIMOD
     Indication: SECONDARY PROGRESSIVE MULTIPLE SCLEROSIS
     Dosage: 2 MG
     Route: 065
     Dates: start: 20210103
  2. MAYZENT [Suspect]
     Active Substance: SIPONIMOD
     Dosage: ALTERNATE DAY
     Route: 065

REACTIONS (2)
  - Fatigue [Unknown]
  - Leukopenia [Unknown]
